FAERS Safety Report 19243271 (Version 1)
Quarter: 2021Q2

REPORT INFORMATION
  Report Type: Spontaneous
  Country: US (occurrence: US)
  Receive Date: 20210511
  Receipt Date: 20210511
  Transmission Date: 20210717
  Serious: No
  Sender: FDA-Public Use
  Company Number: US-TEVA-2021-US-1902318

PATIENT
  Age: 55 Year
  Sex: Female

DRUGS (4)
  1. FIORICET [Concomitant]
     Active Substance: ACETAMINOPHEN\BUTALBITAL\CAFFEINE
     Dosage: 50?300?40MG 1?2 CAP AT ONSET NO MORE THAN 3 TIMES A WEEK
  2. TOPAMAX [Concomitant]
     Active Substance: TOPIRAMATE
     Dosage: 1 TABLET AT NIGHT
  3. AJOVY [Suspect]
     Active Substance: FREMANEZUMAB-VFRM
     Indication: OCCIPITAL NEURALGIA
  4. AJOVY [Suspect]
     Active Substance: FREMANEZUMAB-VFRM
     Indication: MIGRAINE
     Route: 065

REACTIONS (8)
  - Sinusitis [Unknown]
  - Phonophobia [Unknown]
  - Neck pain [Unknown]
  - Photophobia [Unknown]
  - Nausea [Unknown]
  - Inability to afford medication [Unknown]
  - Headache [Unknown]
  - Off label use [Unknown]
